FAERS Safety Report 9948892 (Version 5)
Quarter: 2014Q2

REPORT INFORMATION
  Report Type: Spontaneous
  Country: FR (occurrence: FR)
  Receive Date: 20140304
  Receipt Date: 20140623
  Transmission Date: 20141212
  Serious: Yes (Hospitalization)
  Sender: FDA-Public Use
  Company Number: FR-AMGEN-FRASP2014000365

PATIENT
  Age: 70 Year
  Sex: Female
  Weight: 47 kg

DRUGS (4)
  1. PROLIA [Suspect]
     Indication: OSTEOPOROSIS
     Dosage: 60 UNK, UNK
     Route: 058
     Dates: start: 20131015
  2. ZYMAD [Concomitant]
     Indication: SUPPLEMENTATION THERAPY
     Dosage: 80000 IU, Q2MO
     Route: 048
     Dates: start: 20131205
  3. CALCIPRAT D3 [Concomitant]
     Indication: SUPPLEMENTATION THERAPY
     Dosage: UNK UNK, QD
  4. BONVIVA [Concomitant]
     Dosage: UNK
     Dates: start: 2007, end: 201312

REACTIONS (1)
  - Transient global amnesia [Recovered/Resolved]
